FAERS Safety Report 17734316 (Version 2)
Quarter: 2020Q2

REPORT INFORMATION
  Report Type: Spontaneous
  Country: PT (occurrence: PT)
  Receive Date: 20200501
  Receipt Date: 20200630
  Transmission Date: 20200714
  Serious: Yes (Other)
  Sender: FDA-Public Use
  Company Number: PT-SAMSUNG BIOEPIS-SB-2020-14734

PATIENT
  Age: 44 Year
  Sex: Male
  Weight: 80 kg

DRUGS (2)
  1. BENEPALI [Suspect]
     Active Substance: ETANERCEPT
     Indication: ANKYLOSING SPONDYLITIS
     Route: 058
     Dates: start: 20170710
  2. BENEPALI [Suspect]
     Active Substance: ETANERCEPT
     Dosage: 50 MG EVERY 21 DAYS, REPLACED BY EVERY 7 DAYS
     Route: 058

REACTIONS (4)
  - Musculoskeletal stiffness [Unknown]
  - Drug ineffective [Unknown]
  - Product substitution issue [Unknown]
  - Product use issue [Unknown]

NARRATIVE: CASE EVENT DATE: 20181114
